FAERS Safety Report 20947083 (Version 2)
Quarter: 2022Q2

REPORT INFORMATION
  Report Type: Other
  Country: US (occurrence: None)
  Receive Date: 20220610
  Receipt Date: 20220623
  Transmission Date: 20220721
  Serious: No
  Sender: FDA-Public Use
  Company Number: US-ROCHE-2796051

PATIENT
  Sex: Female
  Weight: 112.08 kg

DRUGS (6)
  1. OCREVUS [Suspect]
     Active Substance: OCRELIZUMAB
     Indication: Relapsing multiple sclerosis
     Dosage: ONGOING-NO: 300 MG/10 ML IV?OCREVUS INFUSION: EVERY 6 MONTHS
     Route: 042
  2. METHYLPREDNISOLONE [Concomitant]
     Active Substance: METHYLPREDNISOLONE
  3. BENADRYL [Concomitant]
     Active Substance: DIPHENHYDRAMINE HYDROCHLORIDE
  4. LEVOTHYROXINE [Concomitant]
     Active Substance: LEVOTHYROXINE
  5. BACLOFEN [Concomitant]
     Active Substance: BACLOFEN
  6. ESCITALOPRAM [Concomitant]
     Active Substance: ESCITALOPRAM OXALATE

REACTIONS (4)
  - Maternal exposure before pregnancy [Unknown]
  - Cerebral disorder [Unknown]
  - Anogenital warts [Unknown]
  - Hypothyroidism [Unknown]
